FAERS Safety Report 13585223 (Version 1)
Quarter: 2017Q2

REPORT INFORMATION
  Report Type: Spontaneous
  Country: US (occurrence: US)
  Receive Date: 20170526
  Receipt Date: 20170526
  Transmission Date: 20170830
  Serious: No
  Sender: FDA-Public Use
  Company Number: GXBR2017US001625

PATIENT
  Sex: Female

DRUGS (15)
  1. CALCIUM [Concomitant]
     Active Substance: CALCIUM
     Dosage: 1200 MG, QD
  2. SYMBICORT [Concomitant]
     Active Substance: BUDESONIDE\FORMOTEROL FUMARATE DIHYDRATE
     Dosage: 160/4.5 2 PUFFS, BID
     Route: 055
  3. LEVOTHYROXINE. [Concomitant]
     Active Substance: LEVOTHYROXINE
     Dosage: 0.05 MG, QD
  4. MONTELUKAST [Concomitant]
     Active Substance: MONTELUKAST SODIUM
     Dosage: 10 MG, QD
  5. ABREVA [Concomitant]
     Active Substance: DOCOSANOL
     Dosage: 2 PUFFS, QD
     Route: 055
  6. VITAMIN D3 [Concomitant]
     Active Substance: CHOLECALCIFEROL
     Dosage: 40 MG, BID
  7. CITALOPRAM HYDROBROMIDE TABLETS [Suspect]
     Active Substance: CITALOPRAM HYDROBROMIDE
     Dosage: 10 MG, QD
     Route: 048
  8. VERAMYST [Concomitant]
     Active Substance: FLUTICASONE FUROATE
     Dosage: 0.0275 MG 1-2 PUFFS QD
     Route: 055
  9. CENTRUM [Concomitant]
     Active Substance: VITAMINS
     Dosage: UNK DF, QD
  10. PHENOBARBITAL. [Concomitant]
     Active Substance: PHENOBARBITAL
     Dosage: 32.4 MG, T2 AM T3 PM
  11. VENTOLIN [Concomitant]
     Active Substance: ALBUTEROL SULFATE
     Dosage: 2 DF, Q4H
  12. CARAFATE [Concomitant]
     Active Substance: SUCRALFATE
     Dosage: 4 TSP, BID
  13. EPIPEN [Concomitant]
     Active Substance: EPINEPHRINE
     Dosage: UNK DF, PRN
  14. ASPIRIN. [Concomitant]
     Active Substance: ASPIRIN
     Dosage: 81 MG, UNK
  15. ELIDEL [Concomitant]
     Active Substance: PIMECROLIMUS
     Dosage: UNK DF, BID

REACTIONS (1)
  - Vertigo [Recovered/Resolved]
